FAERS Safety Report 20174504 (Version 2)
Quarter: 2021Q4

REPORT INFORMATION
  Report Type: Spontaneous
  Country: PT (occurrence: PT)
  Receive Date: 20211213
  Receipt Date: 20211220
  Transmission Date: 20220303
  Serious: Yes (Other)
  Sender: FDA-Public Use
  Company Number: PT-AUROBINDO-AUR-APL-2021-051126

PATIENT
  Age: 33 Year
  Sex: Female

DRUGS (3)
  1. ROPIVACAINE [Suspect]
     Active Substance: ROPIVACAINE
     Indication: Product used for unknown indication
     Dosage: 7 MILLILITER
     Route: 065
  2. PHENYLEPHRINE [Concomitant]
     Active Substance: PHENYLEPHRINE HYDROCHLORIDE
     Indication: Mydriasis
     Dosage: UNK
     Route: 065
  3. TROPICAMIDE [Concomitant]
     Active Substance: TROPICAMIDE
     Indication: Mydriasis

REACTIONS (1)
  - Amaurosis fugax [Recovered/Resolved]
